FAERS Safety Report 10462951 (Version 2)
Quarter: 2014Q4

REPORT INFORMATION
  Report Type: Report from Study
  Country: JP (occurrence: JP)
  Receive Date: 20140918
  Receipt Date: 20141010
  Transmission Date: 20150528
  Serious: Yes (Other)
  Sender: FDA-Public Use
  Company Number: JP-ASTRAZENECA-2014SE70273

PATIENT
  Age: 28536 Day
  Sex: Female

DRUGS (60)
  1. PREDNISOLONE. [Suspect]
     Active Substance: PREDNISOLONE
     Indication: RASH
     Route: 048
     Dates: end: 20140828
  2. ALFACALCIDOL [Concomitant]
     Active Substance: ALFACALCIDOL
     Indication: HYPOCALCAEMIA
     Route: 048
     Dates: start: 20140604, end: 20140707
  3. DEXAMETHASONE. [Concomitant]
     Active Substance: DEXAMETHASONE
     Indication: RASH
     Route: 002
     Dates: start: 20140811
  4. DIMETHYL ISOPROPYLAZULENE [Concomitant]
     Indication: SKIN EROSION
     Route: 003
     Dates: start: 20140707, end: 20140722
  5. SODIUM GUALENATE HYDRATE [Concomitant]
     Active Substance: SODIUM GUALENATE MONOHYDRATE
     Indication: PROPHYLAXIS
     Route: 051
     Dates: start: 20140425
  6. LAC-B [Concomitant]
     Active Substance: BIFIDOBACTERIUM SPP.
     Indication: DIARRHOEA
     Route: 048
     Dates: start: 20140901, end: 20140902
  7. LAC-B [Concomitant]
     Active Substance: BIFIDOBACTERIUM SPP.
     Indication: DIARRHOEA
     Route: 048
     Dates: start: 20140903, end: 20140903
  8. ZD6474 CODE NOT BROKEN [Suspect]
     Active Substance: VANDETANIB
     Indication: THYROID CANCER
     Route: 048
     Dates: start: 20131121, end: 20140603
  9. LEVOTHYROXINE SODIUM HYDRATE [Concomitant]
     Indication: POST PROCEDURAL HYPOTHYROIDISM
     Route: 048
     Dates: end: 20140912
  10. LEVOTHYROXINE SODIUM HYDRATE [Concomitant]
     Indication: POST PROCEDURAL HYPOTHYROIDISM
     Route: 048
     Dates: start: 20140918
  11. ALFACALCIDOL [Concomitant]
     Active Substance: ALFACALCIDOL
     Indication: HYPOCALCAEMIA
     Route: 048
     Dates: start: 20140708
  12. POTASSIUM CHLORIDE. [Concomitant]
     Active Substance: POTASSIUM CHLORIDE
     Indication: MINERAL SUPPLEMENTATION
     Route: 048
     Dates: start: 20140609, end: 20140715
  13. OLMESARTAN MEDOXOMIL. [Concomitant]
     Active Substance: OLMESARTAN MEDOXOMIL
     Indication: HYPERTENSION
     Route: 048
     Dates: start: 20131127, end: 20140622
  14. LEVOCETIRIZINE HYDROCHLORID [Concomitant]
     Indication: RASH
     Route: 048
     Dates: start: 20140905, end: 20140911
  15. LOXOPROFEN SODIUM HYDRATE [Concomitant]
     Active Substance: LOXOPROFEN SODIUM DIHYDRATE
     Indication: RASH
     Route: 003
     Dates: start: 20140910, end: 20140912
  16. PREDNISOLONE. [Suspect]
     Active Substance: PREDNISOLONE
     Indication: RASH
     Route: 048
     Dates: start: 20140821, end: 20140826
  17. AMLODIPINE BESILATE [Concomitant]
     Active Substance: AMLODIPINE BESYLATE
     Indication: HYPERTENSION
     Route: 048
     Dates: start: 20140707
  18. EPINASTINE [Concomitant]
     Active Substance: EPINASTINE
     Indication: RASH
     Route: 048
     Dates: start: 20140722, end: 20140728
  19. POVIDONE-IODINE. [Concomitant]
     Active Substance: POVIDONE-IODINE
     Indication: IMMUNOSUPPRESSION
     Route: 051
     Dates: start: 20140425
  20. ALFACALCIDOL [Concomitant]
     Active Substance: ALFACALCIDOL
     Indication: HYPOCALCAEMIA
     Route: 048
     Dates: start: 20131112, end: 20140210
  21. OLMESARTAN MEDOXOMIL. [Concomitant]
     Active Substance: OLMESARTAN MEDOXOMIL
     Indication: HYPERTENSION
     Route: 048
     Dates: start: 20140813, end: 20140902
  22. BETAMETHASONE VALERATE. [Concomitant]
     Active Substance: BETAMETHASONE VALERATE
     Indication: RASH
     Route: 003
     Dates: start: 20140804, end: 20140904
  23. HEPARINOID [Concomitant]
     Active Substance: CHONDROITIN SULFATE (BOVINE)
     Indication: RASH
     Route: 003
     Dates: start: 20140804
  24. ALPROSTADIL ALFADEX [Concomitant]
     Active Substance: ALPROSTADIL ALFADEX
     Indication: RASH
     Route: 051
     Dates: start: 20140815
  25. OLOPATADINE HYDROCHLORIDE. [Concomitant]
     Active Substance: OLOPATADINE HYDROCHLORIDE
     Indication: RASH
     Route: 048
     Dates: start: 20140826, end: 20140904
  26. LAC-B [Concomitant]
     Active Substance: BIFIDOBACTERIUM SPP.
     Indication: DIARRHOEA
     Route: 048
     Dates: start: 20140904, end: 20140912
  27. ESZOPICLONE. [Concomitant]
     Active Substance: ESZOPICLONE
     Indication: INSOMNIA
     Route: 048
     Dates: start: 20140914
  28. ALFACALCIDOL [Concomitant]
     Active Substance: ALFACALCIDOL
     Indication: HYPOCALCAEMIA
     Route: 048
     Dates: end: 20131111
  29. ALFACALCIDOL [Concomitant]
     Active Substance: ALFACALCIDOL
     Indication: HYPOCALCAEMIA
     Route: 048
     Dates: start: 20140211, end: 20140603
  30. ALFACALCIDOL [Concomitant]
     Active Substance: ALFACALCIDOL
     Indication: HYPOCALCAEMIA
     Route: 048
     Dates: start: 20140211, end: 20140603
  31. ALFACALCIDOL [Concomitant]
     Active Substance: ALFACALCIDOL
     Indication: HYPOCALCAEMIA
     Route: 048
     Dates: start: 20140604, end: 20140707
  32. OLMESARTAN MEDOXOMIL. [Concomitant]
     Active Substance: OLMESARTAN MEDOXOMIL
     Indication: HYPERTENSION
     Route: 048
     Dates: start: 20140623, end: 20140630
  33. OLMESARTAN MEDOXOMIL. [Concomitant]
     Active Substance: OLMESARTAN MEDOXOMIL
     Indication: HYPERTENSION
     Route: 048
     Dates: start: 20140701, end: 20140812
  34. SEIROGAN [Concomitant]
     Indication: DIARRHOEA
     Route: 048
     Dates: start: 20140706, end: 20140706
  35. CYANOCOBALAMIN. [Concomitant]
     Active Substance: CYANOCOBALAMIN
     Indication: ASTHENOPIA
     Route: 047
  36. EPINASTINE [Concomitant]
     Active Substance: EPINASTINE
     Indication: RASH
     Route: 048
     Dates: start: 20140729, end: 20140825
  37. ALFACALCIDOL [Concomitant]
     Active Substance: ALFACALCIDOL
     Indication: HYPOCALCAEMIA
     Route: 048
     Dates: end: 20131111
  38. OLMESARTAN MEDOXOMIL. [Concomitant]
     Active Substance: OLMESARTAN MEDOXOMIL
     Indication: HYPERTENSION
     Route: 048
     Dates: start: 20140623, end: 20140630
  39. DEXAMETHASONE. [Concomitant]
     Active Substance: DEXAMETHASONE
     Indication: GLOSSITIS
     Route: 002
     Dates: start: 20140707, end: 20140722
  40. ZD6474 [Suspect]
     Active Substance: VANDETANIB
     Indication: THYROID CANCER
     Route: 048
     Dates: start: 20140612, end: 20140723
  41. POTASSIUM CHLORIDE. [Concomitant]
     Active Substance: POTASSIUM CHLORIDE
     Indication: MINERAL SUPPLEMENTATION
     Route: 048
     Dates: start: 20140716, end: 20140723
  42. DEXAMETHASONE. [Concomitant]
     Active Substance: DEXAMETHASONE
     Indication: RASH
     Route: 002
     Dates: start: 20140707, end: 20140722
  43. DEXAMETHASONE. [Concomitant]
     Active Substance: DEXAMETHASONE
     Indication: GLOSSITIS
     Route: 002
     Dates: start: 20140811
  44. LEVOCETIRIZINE HYDROCHLORID [Concomitant]
     Indication: RASH
     Route: 048
     Dates: start: 20140904, end: 20140904
  45. PREDNISOLONE. [Suspect]
     Active Substance: PREDNISOLONE
     Indication: RASH
     Route: 048
     Dates: start: 20140729, end: 20140818
  46. METOCLOPRAMIDE. [Concomitant]
     Active Substance: METOCLOPRAMIDE
     Indication: NAUSEA
     Route: 048
     Dates: start: 20140701, end: 20140822
  47. ESZOPICLONE. [Concomitant]
     Active Substance: ESZOPICLONE
     Indication: INSOMNIA
     Route: 048
     Dates: start: 20140701
  48. RABEPRAZOLE SODIUM. [Concomitant]
     Active Substance: RABEPRAZOLE SODIUM
     Indication: PEPTIC ULCER
     Route: 048
     Dates: end: 20140911
  49. ALFACALCIDOL [Concomitant]
     Active Substance: ALFACALCIDOL
     Indication: HYPOCALCAEMIA
     Route: 048
     Dates: start: 20140708
  50. RAMOSETRON HYDROCHLORIDE [Concomitant]
     Active Substance: RAMOSETRON HYDROCHLORIDE
     Indication: NAUSEA
     Route: 048
     Dates: start: 20140627, end: 20140810
  51. HYDROCORTISONE BUTYRATE. [Concomitant]
     Active Substance: HYDROCORTISONE BUTYRATE
     Indication: RASH
     Route: 003
     Dates: start: 20140904, end: 20140912
  52. PREDNISOLONE. [Suspect]
     Active Substance: PREDNISOLONE
     Indication: RASH
     Route: 048
     Dates: start: 20140830, end: 20140912
  53. AMLODIPINE BESILATE [Concomitant]
     Active Substance: AMLODIPINE BESYLATE
     Indication: HYPERTENSION
     Route: 048
     Dates: start: 20140701, end: 20140706
  54. ALENDRONATE [Concomitant]
     Active Substance: ALENDRONATE SODIUM
     Indication: OSTEOPOROSIS
     Route: 048
     Dates: start: 20140731, end: 20140901
  55. KETOPROFEN. [Concomitant]
     Active Substance: KETOPROFEN
     Indication: BACK PAIN
     Route: 003
     Dates: end: 20140810
  56. ALFACALCIDOL [Concomitant]
     Active Substance: ALFACALCIDOL
     Indication: HYPOCALCAEMIA
     Route: 048
     Dates: start: 20131112, end: 20140210
  57. CLOBETASOL PROPIONATE. [Concomitant]
     Active Substance: CLOBETASOL PROPIONATE
     Indication: RASH
     Route: 003
     Dates: start: 20140722, end: 20140912
  58. ZINC OXIDE OINTMENT [Concomitant]
     Indication: RASH
     Route: 003
     Dates: start: 20140815
  59. LAC-B [Concomitant]
     Active Substance: BIFIDOBACTERIUM SPP.
     Indication: DIARRHOEA
     Route: 048
     Dates: start: 20140917
  60. LOXOPROFEN SODIUM HYDRATE [Concomitant]
     Active Substance: LOXOPROFEN SODIUM DIHYDRATE
     Indication: RASH
     Route: 048
     Dates: start: 20140907, end: 20140912

REACTIONS (1)
  - Pneumoperitoneum [Recovered/Resolved]

NARRATIVE: CASE EVENT DATE: 20140911
